FAERS Safety Report 20530154 (Version 1)
Quarter: 2022Q1

REPORT INFORMATION
  Report Type: Spontaneous
  Country: US (occurrence: US)
  Receive Date: 20220301
  Receipt Date: 20220301
  Transmission Date: 20220423
  Serious: No
  Sender: FDA-Public Use
  Company Number: US-BAUSCH-BL-2022-005465

PATIENT
  Age: 93 Year
  Sex: Female
  Weight: 42.676 kg

DRUGS (1)
  1. ALAWAY [Suspect]
     Active Substance: KETOTIFEN FUMARATE
     Indication: Multiple allergies
     Route: 047

REACTIONS (1)
  - Instillation site pain [Unknown]
